FAERS Safety Report 7310918-8 (Version None)
Quarter: 2011Q1

REPORT INFORMATION
  Report Type: 
  Country: None (occurrence: None)
  Receive Date: 20110224
  Receipt Date: 20110215
  Transmission Date: 20110831
  Serious: Yes (Other)
  Sender: FDA-Public Use
  Company Number: DE-JNJFOC-20110107929

PATIENT
  Age: 76 Year
  Sex: Male

DRUGS (3)
  1. FINASTERIDE [Concomitant]
     Indication: PROSTATIC DISORDER
     Route: 065
  2. TAVANIC [Suspect]
     Indication: BRONCHITIS
     Route: 048
  3. GEMFIBROZIL [Concomitant]
     Indication: HYPERLIPIDAEMIA
     Route: 065

REACTIONS (9)
  - NERVOUS SYSTEM DISORDER [None]
  - ANXIETY [None]
  - MEMORY IMPAIRMENT [None]
  - ASTHENIA [None]
  - PERSONALITY CHANGE [None]
  - DECREASED APPETITE [None]
  - DIZZINESS [None]
  - WEIGHT DECREASED [None]
  - BLOOD CREATININE INCREASED [None]
